FAERS Safety Report 8827610 (Version 2)
Quarter: 2012Q4

REPORT INFORMATION
  Report Type: 
  Country: US (occurrence: US)
  Receive Date: 20121005
  Receipt Date: 20121121
  Transmission Date: 20130627
  Serious: Yes (Death)
  Sender: FDA-Public Use
  Company Number: US-ROCHE-1130831

PATIENT
  Age: 57 Year
  Sex: Male

DRUGS (3)
  1. RITUXAN [Suspect]
     Indication: LYMPHOCYTIC LEUKAEMIA
     Route: 042
     Dates: start: 20110822, end: 20111024
  2. RITUXAN [Suspect]
     Route: 042
  3. DEMEROL [Concomitant]
     Indication: CHILLS
     Route: 042

REACTIONS (2)
  - Death [Fatal]
  - Chills [Recovered/Resolved]
